FAERS Safety Report 7806403-7 (Version None)
Quarter: 2011Q4

REPORT INFORMATION
  Report Type: 
  Country: None (occurrence: None)
  Receive Date: 20111011
  Receipt Date: 20110930
  Transmission Date: 20120403
  Serious: Yes (Death)
  Sender: FDA-Public Use
  Company Number: US-BRISTOL-MYERS SQUIBB COMPANY-16121154

PATIENT
  Age: 68 Year
  Sex: Female

DRUGS (8)
  1. WARFARIN SODIUM [Concomitant]
  2. OMEPRAZOLE [Concomitant]
  3. COREG [Concomitant]
  4. GLIPIZIDE [Concomitant]
  5. CRESTOR [Concomitant]
  6. POTASSIUM [Concomitant]
  7. ONGLYZA [Suspect]
     Indication: DIABETES MELLITUS
     Dosage: 8 TO 10 MONTHS
  8. LEVOTHYROXINE SODIUM [Concomitant]

REACTIONS (2)
  - CARDIAC FAILURE [None]
  - RENAL FAILURE [None]
